FAERS Safety Report 9883336 (Version 2)
Quarter: 2014Q1

REPORT INFORMATION
  Report Type: Spontaneous
  Country: DE (occurrence: DE)
  Receive Date: 20140210
  Receipt Date: 20140314
  Transmission Date: 20141002
  Serious: Yes (Other)
  Sender: FDA-Public Use
  Company Number: DE-ROCHE-1344922

PATIENT
  Sex: Female

DRUGS (1)
  1. LUCENTIS [Suspect]
     Indication: AGE-RELATED MACULAR DEGENERATION
     Dosage: IN THE RIGHT EYE
     Route: 050
     Dates: start: 20121010

REACTIONS (2)
  - Foreign body in eye [Not Recovered/Not Resolved]
  - Wrong technique in drug usage process [Unknown]
